FAERS Safety Report 6169797-7 (Version None)
Quarter: 2009Q2

REPORT INFORMATION
  Report Type: 
  Country: None (occurrence: None)
  Receive Date: 20090428
  Receipt Date: 20090218
  Transmission Date: 20091009
  Serious: No
  Sender: FDA-Public Use
  Company Number: US-AMGEN-KDL331725

PATIENT
  Age: 69 Year
  Sex: Female

DRUGS (1)
  1. SENSIPAR [Suspect]
     Indication: HYPERPARATHYROIDISM PRIMARY
     Dates: start: 20080301

REACTIONS (5)
  - BLOOD CALCIUM DECREASED [None]
  - CALCIUM IONISED INCREASED [None]
  - HEADACHE [None]
  - PARAESTHESIA ORAL [None]
  - SENSITIVITY OF TEETH [None]
